FAERS Safety Report 7399025-6 (Version None)
Quarter: 2011Q1

REPORT INFORMATION
  Report Type: 
  Country: None (occurrence: None)
  Receive Date: 20110328
  Receipt Date: 20110311
  Transmission Date: 20110831
  Serious: Yes (Hospitalization)
  Sender: FDA-Public Use
  Company Number: ACO_22264_2011

PATIENT
  Age: 59 Year
  Sex: Female
  Weight: 55 kg

DRUGS (9)
  1. KLONOPIN [Concomitant]
  2. NEURONTIN [Concomitant]
  3. BACLOFEN [Concomitant]
  4. ZANAFLEX [Suspect]
     Indication: PRODUCT USED FOR UNKNOWN INDICATION
  5. ELAVIL /00002202/ (AMITRIPTYLINE HYDROCHLORIDE) [Concomitant]
  6. VITAMIN C /00008001/ (ASCORBIC ACID) [Concomitant]
  7. VITAMIN E /00110501/ (TOCOPHEROL) [Concomitant]
  8. ASPIRIN [Concomitant]
  9. 4-AP (FAMPRIDINE) TABLET, 10MG [Suspect]
     Indication: MULTIPLE SCLEROSIS
     Dosage: QID

REACTIONS (1)
  - HOSPITALISATION [None]
